FAERS Safety Report 22209249 (Version 1)
Quarter: 2023Q2

REPORT INFORMATION
  Report Type: Spontaneous
  Country: US (occurrence: US)
  Receive Date: 20230413
  Receipt Date: 20230413
  Transmission Date: 20230722
  Serious: No
  Sender: FDA-Public Use
  Company Number: US-BAUSCHBL-2023BNL003004

PATIENT
  Sex: Female

DRUGS (2)
  1. LOTEMAX [Suspect]
     Active Substance: LOTEPREDNOL ETABONATE
     Indication: Postoperative care
     Route: 065
     Dates: start: 20230330
  2. PROLENSA [Suspect]
     Active Substance: BROMFENAC SODIUM
     Indication: Product used for unknown indication
     Route: 065

REACTIONS (3)
  - Blood pressure increased [Unknown]
  - Instillation site pain [Unknown]
  - Peripheral swelling [Unknown]

NARRATIVE: CASE EVENT DATE: 20230401
